FAERS Safety Report 15494198 (Version 1)
Quarter: 2018Q4

REPORT INFORMATION
  Report Type: Spontaneous
  Country: BR (occurrence: BR)
  Receive Date: 20181012
  Receipt Date: 20181012
  Transmission Date: 20190205
  Serious: Yes (Other)
  Sender: FDA-Public Use
  Company Number: BR-PFIZER INC-2018394972

PATIENT
  Age: 59 Year
  Sex: Female

DRUGS (3)
  1. ARADOIS [Concomitant]
     Active Substance: LOSARTAN POTASSIUM
     Dosage: 25 MG, UNK
     Dates: start: 2014
  2. ELIFOR [Concomitant]
     Dosage: 100 MG, UNK
     Dates: start: 2014
  3. FRONTAL XR [Suspect]
     Active Substance: ALPRAZOLAM
     Indication: PANIC ATTACK
     Dosage: 1 MG, 2X/DAY
     Dates: start: 2014

REACTIONS (4)
  - Pain [Not Recovered/Not Resolved]
  - Product prescribing error [Unknown]
  - Spinal fracture [Recovered/Resolved]
  - Fall [Recovered/Resolved]

NARRATIVE: CASE EVENT DATE: 2018
